FAERS Safety Report 10454526 (Version 1)
Quarter: 2014Q3

REPORT INFORMATION
  Report Type: Spontaneous
  Country: US (occurrence: US)
  Receive Date: 20140915
  Receipt Date: 20140915
  Transmission Date: 20150326
  Serious: No
  Sender: FDA-Public Use
  Company Number: US-BRISTOL-MYERS SQUIBB COMPANY-20311171

PATIENT
  Age: 61 Year
  Sex: Female
  Weight: 93.42 kg

DRUGS (5)
  1. ONGLYZA [Suspect]
     Active Substance: SAXAGLIPTIN HYDROCHLORIDE
     Indication: DIABETES MELLITUS
  2. LANTUS [Suspect]
     Active Substance: INSULIN GLARGINE
     Dosage: 1DF= 55 UNITS
  3. DIOVAN [Concomitant]
     Active Substance: VALSARTAN
  4. LIPITOR [Concomitant]
     Active Substance: ATORVASTATIN CALCIUM
  5. BYDUREON [Suspect]
     Active Substance: EXENATIDE

REACTIONS (1)
  - Blood glucose increased [Unknown]
